FAERS Safety Report 9480234 (Version 1)
Quarter: 2013Q3

REPORT INFORMATION
  Report Type: Spontaneous
  Country: US (occurrence: US)
  Receive Date: 20130828
  Receipt Date: 20130828
  Transmission Date: 20140515
  Serious: Yes (Hospitalization)
  Sender: FDA-Public Use
  Company Number: US-AMGEN-KDL088069

PATIENT
  Age: 53 Year
  Sex: Female

DRUGS (10)
  1. ENBREL [Suspect]
     Indication: PSORIATIC ARTHROPATHY
     Dosage: 25 MG, 2 TIMES/WK
     Route: 058
     Dates: start: 20030331
  2. METFORMIN HYDROCHLORIDE [Concomitant]
  3. GLIMEPIRIDE [Concomitant]
  4. SPIRONOLACTONE [Concomitant]
  5. IRBESARTAN [Concomitant]
  6. SIMVASTATIN [Concomitant]
  7. RISEDRONATE SODIUM [Concomitant]
  8. SERTRALINE HYDROCHLORIDE [Concomitant]
  9. FUROSEMIDE [Concomitant]
  10. NAPROXEN SODIUM [Concomitant]

REACTIONS (6)
  - Staphylococcal sepsis [Unknown]
  - Urticaria [Unknown]
  - Psoriasis [Unknown]
  - Condition aggravated [Unknown]
  - Back pain [Unknown]
  - Condition aggravated [Unknown]
